FAERS Safety Report 5917872-1 (Version None)
Quarter: 2008Q4

REPORT INFORMATION
  Report Type: 
  Country: None (occurrence: None)
  Receive Date: 20081014
  Receipt Date: 20081006
  Transmission Date: 20090506
  Serious: Yes (Other)
  Sender: FDA-Public Use
  Company Number: US-JNJFOC-20080803519

PATIENT
  Sex: Male

DRUGS (4)
  1. RISPERDAL [Suspect]
     Indication: SCHIZOPHRENIA
     Route: 048
  2. INVEGA [Suspect]
     Indication: SCHIZOPHRENIA, PARANOID TYPE
     Route: 048
  3. VITAMIN E [Concomitant]
     Route: 065
  4. UNKNOWN MEDICATION [Concomitant]
     Route: 048

REACTIONS (3)
  - BLEPHAROSPASM [None]
  - TARDIVE DYSKINESIA [None]
  - WEIGHT INCREASED [None]
